FAERS Safety Report 6248853-9 (Version None)
Quarter: 2009Q2

REPORT INFORMATION
  Report Type: 
  Country: None (occurrence: None)
  Receive Date: 20090629
  Receipt Date: 20090617
  Transmission Date: 20091009
  Serious: Yes (Other)
  Sender: FDA-Public Use
  Company Number: IE-PFIZER INC-2009185599

PATIENT
  Age: 70 Year

DRUGS (6)
  1. VFEND [Suspect]
     Dosage: 200 MG, 2X/DAY
     Route: 048
     Dates: start: 20080325, end: 20080401
  2. ALENDRONIC ACID [Concomitant]
     Route: 048
  3. LANSOPRAZOLE [Concomitant]
     Dosage: UNK
     Route: 048
     Dates: start: 20060101
  4. CALCICHEW-D3 [Concomitant]
     Route: 048
  5. SERETIDE [Concomitant]
  6. TIOTROPIUM [Concomitant]

REACTIONS (6)
  - ANOREXIA [None]
  - ASPARTATE AMINOTRANSFERASE INCREASED [None]
  - FATIGUE [None]
  - GAMMA-GLUTAMYLTRANSFERASE INCREASED [None]
  - PARAESTHESIA [None]
  - TREMOR [None]
